FAERS Safety Report 22078980 (Version 1)
Quarter: 2023Q1

REPORT INFORMATION
  Report Type: Spontaneous
  Country: CH (occurrence: CH)
  Receive Date: 20230309
  Receipt Date: 20230309
  Transmission Date: 20230418
  Serious: Yes (Hospitalization)
  Sender: FDA-Public Use
  Company Number: CH-GUERBET / GUERBET AG-CH-20230005

PATIENT
  Age: 57 Year
  Sex: Female
  Weight: 57 kg

DRUGS (1)
  1. DOTAREM [Suspect]
     Active Substance: GADOTERATE MEGLUMINE
     Indication: Magnetic resonance imaging breast
     Route: 042
     Dates: start: 20230224, end: 20230224

REACTIONS (5)
  - Pruritus [Recovered/Resolved]
  - Erythema [Recovered/Resolved]
  - Swelling of eyelid [Recovered/Resolved]
  - Lip swelling [Recovered/Resolved]
  - Presyncope [Recovered/Resolved]

NARRATIVE: CASE EVENT DATE: 20230224
